FAERS Safety Report 7504455-5 (Version None)
Quarter: 2011Q2

REPORT INFORMATION
  Report Type: 
  Country: None (occurrence: None)
  Receive Date: 20110525
  Receipt Date: 20100110
  Transmission Date: 20111010
  Serious: Yes (Death, Hospitalization, Other)
  Sender: FDA-Public Use
  Company Number: US-BAYER-201010264NA

PATIENT
  Age: 60 Year
  Sex: Male
  Weight: 116 kg

DRUGS (22)
  1. TRIAMTERENE AND HYDROCHLOROTHIAZIDE [Concomitant]
     Dosage: UNK
     Route: 048
  2. SIMVASTATIN [Concomitant]
     Dosage: 40 MG, QD
     Route: 048
  3. FENTANYL [Concomitant]
     Dosage: 2ML
     Route: 042
     Dates: start: 20040524
  4. LOTENSIN [Concomitant]
     Dosage: UNK
     Route: 048
     Dates: start: 20011025
  5. FUROSEMIDE [Concomitant]
     Dosage: UNK
     Route: 048
     Dates: start: 20040517
  6. NITROGLYCERIN [Concomitant]
     Dosage: AS NEEDED, DOSAGE NOT NOTED
     Route: 048
  7. TIAZAC [Concomitant]
     Dosage: 240 MG, QD
     Route: 048
     Dates: start: 20011215
  8. GEMFIBROZIL [Concomitant]
     Dosage: 600 MG, QD
     Route: 048
  9. ALBUMIN (HUMAN) [Concomitant]
     Dosage: 500
     Route: 042
     Dates: start: 20040524
  10. NITROGLYCERIN [Concomitant]
     Dosage: UNK
     Route: 060
     Dates: start: 20040517
  11. HEPARIN [Concomitant]
     Dosage: 3,000 UNITS/40,000 UNITS
     Route: 042
     Dates: start: 20040524
  12. PROTAMINE SULFATE [Concomitant]
     Dosage: 406MG
     Route: 042
     Dates: start: 20040524
  13. ZOCOR [Concomitant]
     Dosage: UNK
     Route: 048
     Dates: start: 20011215
  14. BENAZEPRIL W/HYDROCHLOROTHIAZIDE [Concomitant]
     Dosage: 20MG/25 DAILY
     Route: 048
  15. VERAPAMIL [Concomitant]
     Dosage: 05ML/2ML
     Route: 042
     Dates: start: 20040524
  16. TRASYLOL [Suspect]
     Indication: CORONARY ARTERY BYPASS
     Dosage: APROTININ 200 X 5 DOSES [PER MR]
     Route: 042
     Dates: start: 20040524
  17. ISOSORBIDE MONONITRATE [Concomitant]
     Dosage: UNK
     Route: 048
     Dates: start: 20040517
  18. PLASMA [Concomitant]
     Dosage: UNK
     Dates: start: 20040521
  19. RED BLOOD CELLS [Concomitant]
     Dosage: UNK
     Dates: start: 20040521
  20. LASIX [Concomitant]
     Dosage: 20 MG, QD
     Route: 048
  21. DILTIAZEM [Concomitant]
     Dosage: 240 MG, QD
     Route: 048
  22. IMDUR [Concomitant]
     Dosage: 30 MG, QD
     Route: 048

REACTIONS (12)
  - MYOCARDIAL INFARCTION [None]
  - CEREBROVASCULAR ACCIDENT [None]
  - FEAR [None]
  - DEATH [None]
  - RENAL FAILURE [None]
  - ANHEDONIA [None]
  - PAIN [None]
  - ANXIETY [None]
  - DEPRESSION [None]
  - RENAL INJURY [None]
  - UNEVALUABLE EVENT [None]
  - INJURY [None]
